FAERS Safety Report 5091823-7 (Version None)
Quarter: 2006Q3

REPORT INFORMATION
  Report Type: 
  Country: None (occurrence: None)
  Receive Date: 20060829
  Receipt Date: 20060620
  Transmission Date: 20061208
  Serious: No
  Sender: FDA-Public Use
  Company Number: US-BRISTOL-MYERS SQUIBB COMPANY-13417654

PATIENT
  Sex: Male
  Weight: 91 kg

DRUGS (1)
  1. ERBITUX [Suspect]
     Indication: SALIVARY GLAND CANCER

REACTIONS (2)
  - GLOSSODYNIA [None]
  - TONGUE DISORDER [None]
